FAERS Safety Report 13022321 (Version 2)
Quarter: 2017Q1

REPORT INFORMATION
  Report Type: Spontaneous
  Country: US (occurrence: US)
  Receive Date: 20161213
  Receipt Date: 20170201
  Transmission Date: 20170428
  Serious: No
  Sender: FDA-Public Use
  Company Number: US-PFIZER INC-2016572512

PATIENT
  Age: 12 Year
  Sex: Male

DRUGS (1)
  1. GENOTROPIN [Suspect]
     Active Substance: SOMATROPIN
     Indication: DWARFISM
     Dosage: UNK
     Dates: start: 201602

REACTIONS (4)
  - Incorrect dose administered [Unknown]
  - Product quality issue [Unknown]
  - Injection site pain [Recovered/Resolved]
  - Injection site discomfort [Unknown]

NARRATIVE: CASE EVENT DATE: 20161126
